FAERS Safety Report 10167865 (Version 8)
Quarter: 2024Q2

REPORT INFORMATION
  Report Type: Report from Study
  Country: US (occurrence: US)
  Receive Date: 20140512
  Receipt Date: 20240405
  Transmission Date: 20240715
  Serious: Yes (Death, Other)
  Sender: FDA-Public Use
  Company Number: US-GLAXOSMITHKLINE-A1072709A

PATIENT

DRUGS (17)
  1. BELIMUMAB [Suspect]
     Active Substance: BELIMUMAB
     Indication: Systemic lupus erythematosus
     Dosage: 10 MG/KG, CYC
     Route: 042
     Dates: start: 20140303, end: 20140331
  2. BELIMUMAB [Suspect]
     Active Substance: BELIMUMAB
     Dosage: 520 MG, Q2W
     Dates: start: 20140303, end: 20140331
  3. BELIMUMAB [Suspect]
     Active Substance: BELIMUMAB
     Dosage: 300 UG/ML, WE
     Dates: start: 2010
  4. PREDNISONE [Concomitant]
     Active Substance: PREDNISONE
     Indication: Systemic lupus erythematosus
     Dosage: 5 MG, QD
     Route: 048
     Dates: start: 2012, end: 20140505
  5. NEUPOGEN [Concomitant]
     Active Substance: FILGRASTIM
     Indication: Autoimmune neutropenia
     Dosage: 300 UG, QD
     Route: 058
     Dates: start: 20140410, end: 20140410
  6. NEUPOGEN [Concomitant]
     Active Substance: FILGRASTIM
     Dosage: 300 UG, QD
     Route: 058
     Dates: start: 20140412, end: 20140419
  7. NEUPOGEN [Concomitant]
     Active Substance: FILGRASTIM
     Dosage: 480 UG, QD
     Route: 058
     Dates: start: 20140419, end: 20140426
  8. NEUPOGEN [Concomitant]
     Active Substance: FILGRASTIM
     Dosage: 300 UG, BID
     Route: 058
     Dates: start: 20140426, end: 20140429
  9. NEUPOGEN [Concomitant]
     Active Substance: FILGRASTIM
     Dosage: 480 UG, QD
     Route: 058
     Dates: start: 20140429, end: 20140430
  10. VANCOMYCIN [Concomitant]
     Active Substance: VANCOMYCIN
     Indication: Infection
     Dosage: 1 G, BID
     Route: 042
     Dates: start: 20140411, end: 20140411
  11. VANCOMYCIN [Concomitant]
     Active Substance: VANCOMYCIN
     Indication: Clostridium difficile infection
     Dosage: 1 G, BID
     Route: 042
     Dates: start: 20140417, end: 20140418
  12. VANCOMYCIN [Concomitant]
     Active Substance: VANCOMYCIN
     Dosage: 750 MG, BID
     Route: 042
     Dates: start: 20140418, end: 20140423
  13. VANCOMYCIN [Concomitant]
     Active Substance: VANCOMYCIN
     Dosage: 125 MG, QID
     Route: 042
     Dates: start: 20140501, end: 20140503
  14. FLAGYL [Concomitant]
     Active Substance: METRONIDAZOLE\METRONIDAZOLE HYDROCHLORIDE
     Indication: Infection
     Dosage: 500 MG, TID
     Route: 042
     Dates: start: 20140410, end: 20140411
  15. FLAGYL [Concomitant]
     Active Substance: METRONIDAZOLE\METRONIDAZOLE HYDROCHLORIDE
     Indication: Clostridium difficile infection
     Dosage: 500 UNK
     Route: 042
     Dates: start: 20140418, end: 20140422
  16. FLAGYL [Concomitant]
     Active Substance: METRONIDAZOLE\METRONIDAZOLE HYDROCHLORIDE
     Dosage: 500 MG, TID
     Route: 042
     Dates: start: 20140430, end: 20140501
  17. VORICONAZOLE [Concomitant]
     Active Substance: VORICONAZOLE
     Indication: Infection
     Dosage: 250 MG, BID
     Route: 042
     Dates: start: 20140404, end: 20140505

REACTIONS (1)
  - Klebsiella sepsis [Fatal]

NARRATIVE: CASE EVENT DATE: 20140503
